FAERS Safety Report 10908058 (Version 8)
Quarter: 2015Q4

REPORT INFORMATION
  Report Type: Spontaneous
  Country: US (occurrence: US)
  Receive Date: 20150312
  Receipt Date: 20151027
  Transmission Date: 20160304
  Serious: Yes (Death, Hospitalization)
  Sender: FDA-Public Use
  Company Number: US-ACTELION-A-US2015-111705

PATIENT
  Age: 52 Year
  Sex: Male

DRUGS (17)
  1. WARFARIN [Concomitant]
     Active Substance: WARFARIN
  2. POTASSIUM [Concomitant]
     Active Substance: POTASSIUM
  3. VELETRI [Suspect]
     Active Substance: EPOPROSTENOL
     Dosage: 15 NG/KG, PER MIN
     Route: 042
  4. ASPIRIN. [Concomitant]
     Active Substance: ASPIRIN
  5. VELETRI [Suspect]
     Active Substance: EPOPROSTENOL
     Indication: PULMONARY ARTERIAL HYPERTENSION
     Dosage: 21 NG/KG, PER MIN
     Route: 042
     Dates: start: 201411, end: 20150723
  6. OPSUMIT [Suspect]
     Active Substance: MACITENTAN
     Indication: PULMONARY ARTERIAL HYPERTENSION
     Dosage: 10 MG, QD
     Route: 048
     Dates: start: 201410, end: 20150723
  7. DEMADEX [Concomitant]
     Active Substance: TORSEMIDE
  8. VELETRI [Suspect]
     Active Substance: EPOPROSTENOL
     Dosage: 11 NG/KG, PER MIN
     Route: 042
  9. DIGOXIN. [Concomitant]
     Active Substance: DIGOXIN
  10. VELETRI [Suspect]
     Active Substance: EPOPROSTENOL
     Dosage: 23 NG/KG, UNK
     Route: 042
  11. SILDENAFIL. [Concomitant]
     Active Substance: SILDENAFIL
     Indication: PULMONARY ARTERIAL HYPERTENSION
     Dosage: 20 MG, TID
     Dates: start: 201410
  12. VELETRI [Suspect]
     Active Substance: EPOPROSTENOL
     Dosage: 10 NG/KG, PER MIN
     Route: 042
  13. VELETRI [Suspect]
     Active Substance: EPOPROSTENOL
     Dosage: 16 NG/KG, PER MIN
     Route: 042
  14. REVATIO [Concomitant]
     Active Substance: SILDENAFIL CITRATE
  15. VELETRI [Suspect]
     Active Substance: EPOPROSTENOL
     Dosage: 7 NG/KG, PER MIN
     Route: 042
     Dates: start: 20141107
  16. SPIRONOLACTONE. [Concomitant]
     Active Substance: SPIRONOLACTONE
  17. PANTO [Concomitant]
     Active Substance: PANTOPRAZOLE SODIUM

REACTIONS (17)
  - Cor pulmonale [Recovering/Resolving]
  - Fluid overload [Unknown]
  - Cardiac failure chronic [Recovering/Resolving]
  - Ascites [Recovering/Resolving]
  - Headache [Recovered/Resolved]
  - Abdominal distension [Unknown]
  - Cardiac arrest [Fatal]
  - Dyspnoea [Unknown]
  - Catheter placement [Recovered/Resolved]
  - Blood count abnormal [Unknown]
  - Device dislocation [Recovered/Resolved]
  - Pulmonary arterial hypertension [Unknown]
  - Fluid retention [Unknown]
  - Right ventricular dysfunction [Unknown]
  - Condition aggravated [Unknown]
  - Localised intraabdominal fluid collection [Unknown]
  - Diarrhoea [Recovered/Resolved]

NARRATIVE: CASE EVENT DATE: 20150114
